FAERS Safety Report 22325418 (Version 3)
Quarter: 2023Q2

REPORT INFORMATION
  Report Type: Report from Study
  Country: CO (occurrence: CO)
  Receive Date: 20230516
  Receipt Date: 20230623
  Transmission Date: 20230722
  Serious: Yes (Other)
  Sender: FDA-Public Use
  Company Number: CO-002147023-NVSC2021CO046405

PATIENT
  Age: 44 Year
  Sex: Female
  Weight: 95 kg

DRUGS (13)
  1. COSENTYX [Suspect]
     Active Substance: SECUKINUMAB
     Indication: Ankylosing spondylitis
     Dosage: 150 MG, QMO
     Route: 058
     Dates: start: 20200810
  2. COSENTYX [Suspect]
     Active Substance: SECUKINUMAB
     Dosage: 150 MG, QMO (STARTED AT 1 YEAR AGO)
     Route: 058
     Dates: end: 20230408
  3. COSENTYX [Suspect]
     Active Substance: SECUKINUMAB
     Dosage: 150 MG, QMO
     Route: 058
     Dates: start: 20230422
  4. COSENTYX [Suspect]
     Active Substance: SECUKINUMAB
     Dosage: 150 MG, QMO
     Route: 065
  5. METFORMIN [Suspect]
     Active Substance: METFORMIN HYDROCHLORIDE
     Indication: Glucose tolerance impaired
     Dosage: 850 MG, TID, STARTED APPROXIMATELY  1 YEAR AGO
     Route: 048
  6. METFORMIN [Suspect]
     Active Substance: METFORMIN HYDROCHLORIDE
     Indication: Diabetes mellitus
     Dosage: UNK, Q24H
     Route: 048
  7. PREGABALIN [Suspect]
     Active Substance: PREGABALIN
     Indication: Pain
     Dosage: UNK UNK, Q12H, STARTED 2 MONTHS AGO
     Route: 048
  8. PREGABALIN [Suspect]
     Active Substance: PREGABALIN
     Dosage: UNK UNK, Q12H, STARTED 4 MONTHS AGO
     Route: 048
  9. PREGABALIN [Suspect]
     Active Substance: PREGABALIN
     Dosage: 75 MG, QD
     Route: 065
  10. ACETAMINOPHEN AND CODEINE [Concomitant]
     Active Substance: ACETAMINOPHEN\CODEINE PHOSPHATE
     Indication: Pain
     Dosage: UNK UNK, Q12H, STARTED SEVERAL MONTHS AGO
     Route: 048
  11. ORLISTAT [Concomitant]
     Active Substance: ORLISTAT
     Indication: Weight decreased
     Dosage: UNK, Q8H
     Route: 048
  12. ORLISTAT [Concomitant]
     Active Substance: ORLISTAT
     Indication: Obesity
     Dosage: 120 MG(STOPPED 20 DAYS AGO)
     Route: 065
  13. SULFASALAZINE [Concomitant]
     Active Substance: SULFASALAZINE
     Indication: Pain management
     Dosage: UNK, QID (STARTED 6 YEARS  AGO)
     Route: 048

REACTIONS (10)
  - Hydronephrosis [Recovered/Resolved]
  - Pathogen resistance [Recovered/Resolved]
  - Urinary tract infection [Not Recovered/Not Resolved]
  - Burning sensation [Unknown]
  - Dysuria [Recovered/Resolved]
  - Urine odour abnormal [Not Recovered/Not Resolved]
  - Renal pain [Recovered/Resolved]
  - Renal disorder [Unknown]
  - Alopecia [Unknown]
  - Off label use [Unknown]

NARRATIVE: CASE EVENT DATE: 20210216
